FAERS Safety Report 19024799 (Version 1)
Quarter: 2021Q1

REPORT INFORMATION
  Report Type: Spontaneous
  Country: KR (occurrence: KR)
  Receive Date: 20210318
  Receipt Date: 20210318
  Transmission Date: 20210420
  Serious: Yes (Hospitalization, Other)
  Sender: FDA-Public Use
  Company Number: KR-PFIZER INC-2021265340

PATIENT
  Age: 7 Year
  Sex: Male

DRUGS (4)
  1. METHOTREXATE SODIUM. [Suspect]
     Active Substance: METHOTREXATE SODIUM
     Indication: ACUTE LYMPHOCYTIC LEUKAEMIA
     Dosage: 7 CYCLIC, MAINTENANCE CHEMOTHERAPY
  2. VINCRISTINE SULFATE. [Suspect]
     Active Substance: VINCRISTINE SULFATE
     Indication: ACUTE LYMPHOCYTIC LEUKAEMIA
     Dosage: 7 CYCLIC, MAINTENANCE CHEMOTHERAPY
  3. MERCAPTOPURINE. [Suspect]
     Active Substance: MERCAPTOPURINE
     Indication: ACUTE LYMPHOCYTIC LEUKAEMIA
     Dosage: 7 CYCLIC, MAINTENANCE CHEMOTHERAPY
  4. PREDNISOLONE. [Suspect]
     Active Substance: PREDNISOLONE
     Indication: ACUTE LYMPHOCYTIC LEUKAEMIA
     Dosage: 7 CYCLIC, MAINTENANCE CHEMOTHERAPY

REACTIONS (4)
  - Off label use [Unknown]
  - Cytomegalovirus infection [Recovering/Resolving]
  - Cytomegalovirus colitis [Unknown]
  - Cytomegalovirus chorioretinitis [Recovering/Resolving]
